FAERS Safety Report 6032063-4 (Version None)
Quarter: 2009Q1

REPORT INFORMATION
  Report Type: 
  Country: None (occurrence: None)
  Receive Date: 20090107
  Receipt Date: 20081226
  Transmission Date: 20090719
  Serious: Yes (Death, Life-Threatening, Hospitalization)
  Sender: FDA-Public Use
  Company Number: JPI-P-005699

PATIENT
  Age: 24 Year
  Sex: Female

DRUGS (5)
  1. LUVOX CR [Suspect]
     Indication: ADJUSTMENT DISORDER WITH DEPRESSED MOOD
     Dosage: 25 MG (25 MG, 1 IN 1 D), ORAL
     Route: 048
     Dates: start: 20080225, end: 20080317
  2. ETHYL LOFLAZEPATE [Concomitant]
  3. ALPRAZOLAM [Concomitant]
  4. MILNACIPRAN HYDROCHLORIDE [Concomitant]
  5. CLOTIAZEPAM [Concomitant]

REACTIONS (17)
  - AGGRESSION [None]
  - ANOREXIA [None]
  - CARBON MONOXIDE POISONING [None]
  - COMPLETED SUICIDE [None]
  - CONFUSIONAL STATE [None]
  - CONSTIPATION [None]
  - DECREASED INTEREST [None]
  - DEPRESSION [None]
  - IMPULSIVE BEHAVIOUR [None]
  - INSOMNIA [None]
  - INTENTIONAL OVERDOSE [None]
  - MALAISE [None]
  - PERSONALITY DISORDER [None]
  - SELF INJURIOUS BEHAVIOUR [None]
  - SOMNOLENCE [None]
  - THIRST [None]
  - WEIGHT DECREASED [None]
